FAERS Safety Report 23194920 (Version 1)
Quarter: 2023Q4

REPORT INFORMATION
  Report Type: Report from Study
  Country: DE (occurrence: DE)
  Receive Date: 20231117
  Receipt Date: 20231117
  Transmission Date: 20240110
  Serious: Yes (Hospitalization, Other)
  Sender: FDA-Public Use
  Company Number: DE-ABBVIE-5456473

PATIENT
  Sex: Male

DRUGS (2)
  1. CARBIDOPA\LEVODOPA [Suspect]
     Active Substance: CARBIDOPA\LEVODOPA
     Indication: Parkinson^s disease
     Dosage: MD: 4.0 ML, CRD 3.2 ML/H, CRN: 1.8 ML/H ED: 1.0 ML?LAST ADMIN DATE 2023
     Route: 050
     Dates: start: 20230918
  2. CARBIDOPA\LEVODOPA [Suspect]
     Active Substance: CARBIDOPA\LEVODOPA
     Dosage: MD: 4.0 ML, CRD 4.0 ML/H, CRN: 1.8 ML/H ED: 1.0 ML?FIRST ADMIN DATE 2023
     Route: 050

REACTIONS (8)
  - Pneumonia [Recovered/Resolved]
  - Hypokinesia [Not Recovered/Not Resolved]
  - Thrombosis [Recovered/Resolved]
  - Vocal fold immobility [Not Recovered/Not Resolved]
  - SARS-CoV-2 test positive [Recovered/Resolved]
  - Pulmonary embolism [Recovered/Resolved]
  - Decubitus ulcer [Recovering/Resolving]
  - Pneumonia [Not Recovered/Not Resolved]

NARRATIVE: CASE EVENT DATE: 20230101
